FAERS Safety Report 15841231 (Version 3)
Quarter: 2019Q1

REPORT INFORMATION
  Report Type: Spontaneous
  Country: US (occurrence: US)
  Receive Date: 20190118
  Receipt Date: 20190204
  Transmission Date: 20190417
  Serious: Yes (Death, Hospitalization)
  Sender: FDA-Public Use
  Company Number: US-ASTELLAS-2018US051235

PATIENT
  Age: 63 Year
  Sex: Male

DRUGS (1)
  1. XTANDI [Suspect]
     Active Substance: ENZALUTAMIDE
     Indication: PROSTATE CANCER
     Route: 048

REACTIONS (7)
  - Death [Fatal]
  - Confusional state [Not Recovered/Not Resolved]
  - Cognitive disorder [Not Recovered/Not Resolved]
  - Dysphagia [Unknown]
  - Visual impairment [Not Recovered/Not Resolved]
  - Muscular weakness [Unknown]
  - Condition aggravated [Unknown]

NARRATIVE: CASE EVENT DATE: 201810
